FAERS Safety Report 13699609 (Version 1)
Quarter: 2017Q2

REPORT INFORMATION
  Report Type: Spontaneous
  Country: JP (occurrence: JP)
  Receive Date: 20170629
  Receipt Date: 20170629
  Transmission Date: 20170830
  Serious: Yes (Death)
  Sender: FDA-Public Use
  Company Number: JP-ROCHE-GNE014440

PATIENT
  Age: 75 Year
  Sex: Male

DRUGS (3)
  1. ACTILYSE [Suspect]
     Active Substance: ALTEPLASE
     Indication: ACUTE MYOCARDIAL INFARCTION
     Dosage: 2.4 X 10^6 IU
     Route: 040
  2. ACTILYSE [Suspect]
     Active Substance: ALTEPLASE
     Dosage: 21.6 X 10^6 IU INFUSED OVER 1 HOUR
     Route: 041
  3. HEPARIN [Concomitant]
     Active Substance: HEPARIN SODIUM
     Route: 065

REACTIONS (2)
  - Cardio-respiratory arrest [Fatal]
  - Cerebral haemorrhage [Fatal]
